FAERS Safety Report 9649459 (Version 3)
Quarter: 2013Q4

REPORT INFORMATION
  Report Type: Spontaneous
  Country: US (occurrence: US)
  Receive Date: 20131028
  Receipt Date: 20131217
  Transmission Date: 20140711
  Serious: No
  Sender: FDA-Public Use
  Company Number: US-TEVA-440737USA

PATIENT
  Age: 55 Year
  Sex: Female

DRUGS (1)
  1. COPAXONE [Suspect]
     Indication: MULTIPLE SCLEROSIS
     Dates: start: 20120928

REACTIONS (4)
  - Oral mucosal discolouration [Recovering/Resolving]
  - Swelling [Recovering/Resolving]
  - Lymphadenopathy [Recovering/Resolving]
  - Oral pain [Recovering/Resolving]
